FAERS Safety Report 16256224 (Version 1)
Quarter: 2019Q2

REPORT INFORMATION
  Report Type: Spontaneous
  Country: US (occurrence: US)
  Receive Date: 20190430
  Receipt Date: 20190430
  Transmission Date: 20190711
  Serious: Yes (Other)
  Sender: FDA-Public Use
  Company Number: US-ASSERTIO THERAPEUTICS, INC.-US-2019DEP000379

PATIENT
  Age: 75 Year
  Sex: Male
  Weight: 112.2 kg

DRUGS (3)
  1. ASPIRIN                            /00002701/ [Concomitant]
     Active Substance: ASPIRIN
     Indication: PRODUCT USED FOR UNKNOWN INDICATION
     Dosage: 81 MG, QD
     Route: 048
  2. VALSARTAN + HCTZ [Concomitant]
     Active Substance: HYDROCHLOROTHIAZIDE\VALSARTAN
     Indication: HYPERTENSION
     Dosage: 160MG/25MG, QD
     Route: 048
     Dates: start: 2008
  3. GRALISE [Suspect]
     Active Substance: GABAPENTIN
     Indication: NEURALGIA
     Dosage: 1800 MG, QD (WITH EVENING MEAL)
     Route: 048
     Dates: start: 20190218

REACTIONS (5)
  - Product use in unapproved indication [Unknown]
  - Burning sensation [Recovered/Resolved]
  - Arthritis [Unknown]
  - Product dose omission [Unknown]
  - Hand fracture [Unknown]

NARRATIVE: CASE EVENT DATE: 2019
